FAERS Safety Report 11105012 (Version 1)
Quarter: 2015Q2

REPORT INFORMATION
  Report Type: Spontaneous
  Country: CH (occurrence: CH)
  Receive Date: 20150511
  Receipt Date: 20150511
  Transmission Date: 20150821
  Serious: Yes (Hospitalization)
  Sender: FDA-Public Use
  Company Number: CH-B.I. PHARMACEUTICALS,INC./RIDGEFIELD-2015-BI-24449SI

PATIENT
  Age: 86 Year
  Sex: Male
  Weight: 78 kg

DRUGS (10)
  1. DILZEM-RR [Suspect]
     Active Substance: DILTIAZEM HYDROCHLORIDE
     Indication: ATRIAL FIBRILLATION
     Dosage: 240 MG
     Route: 048
     Dates: start: 20150411, end: 20150414
  2. LASIX [Suspect]
     Active Substance: FUROSEMIDE
     Indication: CARDIAC FAILURE
     Route: 042
     Dates: start: 20150410, end: 20150414
  3. MICARDIS [Suspect]
     Active Substance: TELMISARTAN
     Indication: PRODUCT USED FOR UNKNOWN INDICATION
     Route: 048
     Dates: start: 20140411, end: 20150414
  4. SINTROM [Concomitant]
     Active Substance: ACENOCOUMAROL
     Indication: ATRIAL FIBRILLATION
     Route: 048
  5. ATROVENT [Concomitant]
     Active Substance: IPRATROPIUM BROMIDE
     Indication: CHRONIC OBSTRUCTIVE PULMONARY DISEASE
     Dosage: 0.75 MG
     Route: 055
  6. VENTOLIN [Concomitant]
     Active Substance: ALBUTEROL SULFATE
     Indication: CHRONIC OBSTRUCTIVE PULMONARY DISEASE
     Dosage: 7.5 MG
     Route: 055
  7. BELOC ZOK [Suspect]
     Active Substance: METOPROLOL SUCCINATE
     Indication: ATRIAL FIBRILLATION
     Dosage: 25 MG
     Route: 048
     Dates: start: 20150414, end: 20150414
  8. DUODART [Suspect]
     Active Substance: DUTASTERIDE\TAMSULOSIN
     Indication: BENIGN PROSTATIC HYPERPLASIA
     Dosage: 1 ANZ
     Route: 048
     Dates: start: 20150411, end: 20150414
  9. ATORVASTATIN [Concomitant]
     Active Substance: ATORVASTATIN
     Indication: HYPERCHOLESTEROLAEMIA
     Dosage: 10 MG
     Route: 048
  10. ZYLORIC [Concomitant]
     Active Substance: ALLOPURINOL
     Indication: GOUT
     Dosage: 100 MG
     Route: 048

REACTIONS (9)
  - Acute kidney injury [Recovered/Resolved]
  - Cardiogenic shock [Recovered/Resolved]
  - Hypotension [Recovered/Resolved]
  - Cardiac disorder [Recovered/Resolved]
  - Anuria [Recovered/Resolved]
  - Seizure [Recovered/Resolved]
  - Atrioventricular block complete [Recovered/Resolved]
  - Bradycardia [Recovered/Resolved]
  - Depressed level of consciousness [Recovered/Resolved]

NARRATIVE: CASE EVENT DATE: 20150414
